FAERS Safety Report 20866887 (Version 1)
Quarter: 2022Q2

REPORT INFORMATION
  Report Type: Report from Study
  Country: GB (occurrence: GB)
  Receive Date: 20220524
  Receipt Date: 20220524
  Transmission Date: 20220720
  Serious: Yes (Other)
  Sender: FDA-Public Use
  Company Number: GB-PFIZER INC-202200713949

PATIENT
  Weight: 7.9 kg

DRUGS (17)
  1. MYLOTARG [Suspect]
     Active Substance: GEMTUZUMAB OZOGAMICIN
     Dosage: 0.8 MG, OTHER
     Route: 042
     Dates: start: 20220414, end: 20220414
  2. MITOXANTRONE HYDROCHLORIDE [Suspect]
     Active Substance: MITOXANTRONE HYDROCHLORIDE
     Dosage: 3 MG/M2, 1X/DAY
     Route: 042
     Dates: start: 20220412, end: 20220415
  3. PROBENECID [Concomitant]
     Active Substance: PROBENECID
     Indication: Nephropathy toxic
     Dosage: 125 MG, ONCE A DAY MON/WED/FRI ONLY-ON CIDOFOVIR
     Dates: start: 20220509
  4. CIDOFOVIR [Concomitant]
     Active Substance: CIDOFOVIR
     Indication: Infection
     Dosage: 7.5MG INFUSION-ONCE A DAY MON/WED/FRI ONLY
     Dates: start: 20220509
  5. KCL [Concomitant]
     Active Substance: POTASSIUM CHLORIDE
     Dosage: 40 MMOL/250ML INFUSION - LOW KCL LEVELS AS NEEDED
     Dates: start: 20220425, end: 20220511
  6. AMILORIDE [Concomitant]
     Active Substance: AMILORIDE
     Dosage: 5MG IN 5 MLS BD-WITH AMPHOTERICIN
     Dates: start: 20220427, end: 20220427
  7. SODIUM PHOSPHATE [Concomitant]
     Active Substance: SODIUM PHOSPHATE
     Dosage: 50MMOL/500ML INFUSION LOW LEVELS, AS NEEDED
     Dates: start: 20220504, end: 20220510
  8. ACETAMINOPHEN [Concomitant]
     Active Substance: ACETAMINOPHEN
     Indication: Pain
     Dosage: 55MG INFUSION PAIN AS NEEDED
     Dates: start: 20220411
  9. PIPERACILLIN AND TAZOBACTAM [Concomitant]
     Active Substance: PIPERACILLIN SODIUM\TAZOBACTAM SODIUM
     Indication: Infection
     Dosage: 666 MG
     Dates: start: 20220411
  10. MAGNESIUM SULFATE [Concomitant]
     Active Substance: MAGNESIUM SULFATE
     Dosage: 1.5 MMOL-LOW LEVELS. AS NEEDED
     Dates: start: 20220428, end: 20220509
  11. MORPHINE SULFATE [Concomitant]
     Active Substance: MORPHINE SULFATE
     Indication: Pain
     Dosage: 10MG/5ML PAIN 4 HOURLY AS NEEDED
     Dates: start: 20220505
  12. VANCOMYCIN [Concomitant]
     Active Substance: VANCOMYCIN
     Indication: Infection
     Dosage: 144.5 MG 6 HRLY
     Dates: start: 20220503, end: 20220509
  13. MEROPENEM [Concomitant]
     Active Substance: MEROPENEM
     Indication: Infection
     Dosage: 147.5 MG 8 HRLY
     Dates: start: 20220501
  14. AMPHOTERICIN B [Concomitant]
     Active Substance: AMPHOTERICIN B
     Indication: Infection
     Dosage: 19 MG
     Dates: start: 20220419, end: 20220511
  15. LANSOPRAZOLE [Concomitant]
     Active Substance: LANSOPRAZOLE
     Indication: Gastric disorder
     Dosage: 3.75 MG, DAILY
     Dates: start: 20220425, end: 20220511
  16. CIPROFLOXACIN [Concomitant]
     Active Substance: CIPROFLOXACIN
     Indication: Prophylaxis
     Dosage: 77.5 MG, 2X/DAY
     Dates: start: 20220417, end: 20220501
  17. COTRIMOXAZOLE [Concomitant]
     Active Substance: SULFAMETHOXAZOLE\TRIMETHOPRIM
     Indication: Prophylaxis
     Dosage: 187.2 MG, 2X/DAY
     Dates: start: 20220416, end: 20220508

REACTIONS (1)
  - Acidosis [Not Recovered/Not Resolved]

NARRATIVE: CASE EVENT DATE: 20220511
